FAERS Safety Report 6208762-8 (Version None)
Quarter: 2009Q2

REPORT INFORMATION
  Report Type: 
  Country: None (occurrence: None)
  Receive Date: 20090529
  Receipt Date: 20090526
  Transmission Date: 20091009
  Serious: Yes (Death)
  Sender: FDA-Public Use
  Company Number: JP-AVENTIS-200911192JP

PATIENT
  Age: 67 Year
  Sex: Female
  Weight: 48 kg

DRUGS (8)
  1. TAXOTERE [Suspect]
     Route: 041
     Dates: start: 20090204, end: 20090204
  2. TAXOTERE [Suspect]
     Route: 041
     Dates: start: 20090225, end: 20090225
  3. DECADRON [Concomitant]
     Route: 042
     Dates: start: 20090204, end: 20090225
  4. KYTRIL                             /01178101/ [Concomitant]
     Route: 042
     Dates: start: 20090204, end: 20090204
  5. GRANISETRON HCL [Concomitant]
     Route: 042
     Dates: start: 20090225, end: 20090225
  6. ENDOXAN [Concomitant]
     Dates: start: 20081112, end: 20090114
  7. FLUOROURACIL [Concomitant]
     Dates: start: 20081112, end: 20090114
  8. FARMORUBICIN                       /00699301/ [Concomitant]
     Dates: start: 20081112, end: 20090114

REACTIONS (1)
  - INTERSTITIAL LUNG DISEASE [None]
